FAERS Safety Report 6676329-3 (Version None)
Quarter: 2010Q2

REPORT INFORMATION
  Report Type: 
  Country: None (occurrence: None)
  Receive Date: 20100412
  Receipt Date: 20100406
  Transmission Date: 20101027
  Serious: Yes (Hospitalization)
  Sender: FDA-Public Use
  Company Number: JP-BAYER-200910913BYL

PATIENT
  Age: 69 Year
  Sex: Male
  Weight: 55 kg

DRUGS (22)
  1. NEXAVAR [Suspect]
     Indication: RENAL CELL CARCINOMA
     Dosage: TOTAL DAILY DOSE: 800 MG  UNIT DOSE: 200 MG
     Route: 048
     Dates: start: 20090223, end: 20090323
  2. NEXAVAR [Suspect]
     Dosage: TOTAL DAILY DOSE: 400 MG  UNIT DOSE: 200 MG
     Route: 048
     Dates: start: 20090324, end: 20090324
  3. NEXAVAR [Suspect]
     Dosage: UNIT DOSE: 200 MG
     Route: 048
     Dates: start: 20090821, end: 20091009
  4. NEXAVAR [Suspect]
     Dosage: TOTAL DAILY DOSE: 400 MG  UNIT DOSE: 200 MG
     Route: 048
     Dates: start: 20090507, end: 20090603
  5. NEXAVAR [Suspect]
     Dosage: TOTAL DAILY DOSE: 200 MG  UNIT DOSE: 200 MG
     Route: 048
     Dates: start: 20090604, end: 20090820
  6. MINOPHAGEN C [Concomitant]
     Indication: HEPATIC FUNCTION ABNORMAL
     Route: 042
     Dates: start: 20090324, end: 20090330
  7. MOBIC [Concomitant]
     Route: 048
     Dates: start: 20090223, end: 20090323
  8. MICARDIS [Concomitant]
     Route: 048
     Dates: start: 20090223
  9. OXINORM [Concomitant]
     Route: 048
     Dates: start: 20090310
  10. OXINORM [Concomitant]
     Route: 048
     Dates: start: 20090305, end: 20090309
  11. KALIMATE [Concomitant]
     Route: 048
     Dates: start: 20090305, end: 20090310
  12. KALIMATE [Concomitant]
     Route: 048
     Dates: start: 20090311, end: 20090316
  13. KALIMATE [Concomitant]
     Route: 048
     Dates: start: 20090319
  14. OXYCONTIN [Concomitant]
     Route: 048
     Dates: start: 20090317
  15. OXYCONTIN [Concomitant]
     Route: 048
     Dates: start: 20090310, end: 20090316
  16. TAGAMET [Concomitant]
     Route: 048
     Dates: start: 20090311, end: 20090323
  17. MAGMITT [Concomitant]
     Route: 048
     Dates: start: 20090311
  18. MAGMITT [Concomitant]
     Dosage: UNIT DOSE: 330 MG
     Route: 048
     Dates: start: 20090604
  19. HANGE-KOBOKU-TO [Concomitant]
     Route: 048
     Dates: start: 20090327, end: 20090331
  20. MUCOSTA [Concomitant]
     Route: 048
     Dates: start: 20090604
  21. HYPEN [Concomitant]
     Dosage: UNIT DOSE: 200 MG
     Route: 048
     Dates: start: 20090604
  22. GABAPEN [Concomitant]
     Dosage: UNIT DOSE: 200 MG
     Route: 048
     Dates: start: 20090813

REACTIONS (3)
  - HEPATIC FUNCTION ABNORMAL [None]
  - HYPERKALAEMIA [None]
  - PALMAR-PLANTAR ERYTHRODYSAESTHESIA SYNDROME [None]
